APPROVED DRUG PRODUCT: CHLORTHALIDONE
Active Ingredient: CHLORTHALIDONE
Strength: 50MG
Dosage Form/Route: TABLET;ORAL
Application: A088140 | Product #001
Applicant: PUREPAC PHARMACEUTICAL CO
Approved: Aug 11, 1983 | RLD: No | RS: No | Type: DISCN